FAERS Safety Report 17493309 (Version 1)
Quarter: 2020Q1

REPORT INFORMATION
  Report Type: Spontaneous
  Country: US (occurrence: US)
  Receive Date: 20200220
  Receipt Date: 20200220
  Transmission Date: 20200409
  Serious: No
  Sender: FDA-Public Use
  Company Number: None

PATIENT
  Age: 69 Year
  Sex: Male
  Weight: 105.23 kg

DRUGS (2)
  1. RIVAROXABAN (RIVAROXABAN 20MG TAB) [Suspect]
     Active Substance: RIVAROXABAN
     Indication: THROMBOSIS PROPHYLAXIS
     Dosage: ?          OTHER FREQUENCY:PM;?
     Route: 048
     Dates: start: 20190313, end: 20200117
  2. RIVAROXABAN (RIVAROXABAN 20MG TAB) [Suspect]
     Active Substance: RIVAROXABAN
     Indication: DEEP VEIN THROMBOSIS
     Dosage: ?          OTHER FREQUENCY:PM;?
     Route: 048
     Dates: start: 20190313, end: 20200117

REACTIONS (2)
  - Treatment failure [None]
  - Deep vein thrombosis [None]

NARRATIVE: CASE EVENT DATE: 20200117
